FAERS Safety Report 12659591 (Version 3)
Quarter: 2016Q4

REPORT INFORMATION
  Report Type: Spontaneous
  Country: US (occurrence: US)
  Receive Date: 20160817
  Receipt Date: 20161128
  Transmission Date: 20170207
  Serious: Yes (Other)
  Sender: FDA-Public Use
  Company Number: US-PFIZER INC-2016385676

PATIENT
  Sex: Female

DRUGS (2)
  1. ADVIL PM [Suspect]
     Active Substance: DIPHENHYDRAMINE CITRATE\IBUPROFEN
     Dosage: UNK UNK, 1X/DAY (NIGHTLY)
  2. GLUTEN [Suspect]
     Active Substance: WHEAT GLUTEN

REACTIONS (2)
  - Condition aggravated [Unknown]
  - Coeliac disease [Unknown]
